FAERS Safety Report 9485429 (Version 1)
Quarter: 2013Q3

REPORT INFORMATION
  Report Type: Report from Study
  Country: US (occurrence: US)
  Receive Date: 20130829
  Receipt Date: 20130829
  Transmission Date: 20140515
  Serious: Yes (Other)
  Sender: FDA-Public Use
  Company Number: US-ROCHE-1268000

PATIENT
  Sex: Female
  Weight: 107.14 kg

DRUGS (14)
  1. ACTEMRA [Suspect]
     Indication: RHEUMATOID ARTHRITIS
     Route: 042
  2. ARAVA [Concomitant]
  3. GABAPENTIN [Concomitant]
  4. PLAQUENIL [Concomitant]
  5. CYMBALTA [Concomitant]
  6. FLEXERIL (UNITED STATES) [Concomitant]
     Route: 065
  7. OXYCODONE [Concomitant]
     Route: 065
  8. FENTANYL PATCH [Concomitant]
     Dosage: CHANGED EVERY THREE DAYS
     Route: 065
  9. ACYCLOVIR [Concomitant]
     Route: 065
  10. VOLTAREN [Concomitant]
     Route: 065
  11. HCTZ [Concomitant]
     Route: 065
  12. SOTALOL [Concomitant]
     Route: 065
  13. RESTASIS [Concomitant]
     Route: 065
  14. FISH OIL [Concomitant]
     Route: 065

REACTIONS (1)
  - Back pain [Not Recovered/Not Resolved]
